FAERS Safety Report 9908198 (Version 1)
Quarter: 2013Q2

REPORT INFORMATION
  Report Type: Spontaneous
  Country: US (occurrence: None)
  Receive Date: 20130305
  Receipt Date: 20130305
  Transmission Date: 20140414
  Serious: Yes (Other)
  Sender: FDA-Public Use
  Company Number: 163-21880-12122709

PATIENT
  Age: 77 Year
  Sex: Male
  Weight: 68.6 kg

DRUGS (3)
  1. REVLIMID (LENALIDOMIDE) (CAPSULES) [Suspect]
     Indication: PLASMA CELL MYELOMA
     Dosage: 25 MG, 14 IN 14 D, PO
     Route: 048
     Dates: start: 20121127, end: 20121210
  2. VELCADE (BORTEZOMIB) (UNKNOWN) [Suspect]
     Indication: PLASMA CELL MYELOMA
     Dosage: 2.3 MG, DAYS 1, 4, 8, 11, UNK
     Dates: start: 20121105
  3. DEXAMETHASONE (DEXAMETHASONE) (UNKNOWN) [Suspect]
     Indication: PLASMA CELL MYELOMA
     Dates: start: 20121105

REACTIONS (5)
  - Functional gastrointestinal disorder [None]
  - Fatigue [None]
  - Platelet count decreased [None]
  - Dyspnoea [None]
  - Decreased appetite [None]
